FAERS Safety Report 4428921-4 (Version None)
Quarter: 2004Q3

REPORT INFORMATION
  Report Type: 
  Country: None (occurrence: None)
  Receive Date: 20040818
  Receipt Date: 20040811
  Transmission Date: 20050211
  Serious: Yes (Other)
  Sender: FDA-Public Use
  Company Number: US-BRISTOL-MYERS SQUIBB COMPANY-12669354

PATIENT
  Sex: Male

DRUGS (2)
  1. SERZONE [Suspect]
     Indication: INSOMNIA
     Route: 048
     Dates: start: 19980201, end: 20020801
  2. SERZONE [Suspect]
     Indication: MENTAL DISORDER
     Route: 048
     Dates: start: 19980201, end: 20020801

REACTIONS (3)
  - HEPATIC STEATOSIS [None]
  - MENTAL DISORDER [None]
  - PORTAL TRIADITIS [None]
